FAERS Safety Report 6719932-4 (Version None)
Quarter: 2010Q2

REPORT INFORMATION
  Report Type: 
  Country: None (occurrence: None)
  Receive Date: 20100511
  Receipt Date: 20090513
  Transmission Date: 20101027
  Serious: Yes (Other)
  Sender: FDA-Public Use
  Company Number: DE-SANOFI-AVENTIS-A04200900590

PATIENT
  Age: 70 Year
  Sex: Male

DRUGS (12)
  1. CLOPIDOGREL BISULFATE [Suspect]
     Dosage: UNIT DOSE: 75 MG
     Route: 048
     Dates: start: 20090101
  2. CLOPIDOGREL BISULFATE [Suspect]
     Indication: VASCULAR GRAFT OCCLUSION
     Dosage: UNIT DOSE: 75 MG
     Route: 048
     Dates: start: 20090101
  3. ACETYLSALICYLIC ACID [Suspect]
     Indication: STENT PLACEMENT
     Dosage: UNIT DOSE: 100 MG
     Route: 048
     Dates: start: 20090101
  4. ACETYLSALICYLIC ACID [Suspect]
     Indication: VASCULAR GRAFT OCCLUSION
     Dosage: UNIT DOSE: 100 MG
     Route: 048
     Dates: start: 20090101
  5. SIMVASTATIN [Suspect]
     Indication: STENT PLACEMENT
     Dosage: UNIT DOSE: 40 MG
     Route: 048
     Dates: start: 20090101
  6. SIMVASTATIN [Suspect]
     Indication: VASCULAR GRAFT OCCLUSION
     Dosage: UNIT DOSE: 40 MG
     Route: 048
     Dates: start: 20090101
  7. OMEPRAZOLE [Suspect]
     Dosage: UNIT DOSE: 40 MG
     Route: 048
     Dates: start: 20090101
  8. OMEPRAZOLE [Suspect]
     Indication: VASCULAR GRAFT OCCLUSION
     Dosage: UNIT DOSE: 40 MG
     Route: 048
     Dates: start: 20090101
  9. RAMIPRIL [Suspect]
     Indication: STENT PLACEMENT
     Route: 048
     Dates: start: 20090101
  10. RAMIPRIL [Suspect]
     Indication: VASCULAR GRAFT OCCLUSION
     Route: 048
     Dates: start: 20090101
  11. BISOPROLOL FUMARATE [Suspect]
     Route: 048
     Dates: start: 20090101
  12. BISOPROLOL FUMARATE [Suspect]
     Indication: VASCULAR GRAFT OCCLUSION
     Route: 048
     Dates: start: 20090101

REACTIONS (1)
  - DEPRESSION [None]
